FAERS Safety Report 22196958 (Version 2)
Quarter: 2023Q2

REPORT INFORMATION
  Report Type: Spontaneous
  Country: US (occurrence: US)
  Receive Date: 20230411
  Receipt Date: 20230601
  Transmission Date: 20230721
  Serious: Yes (Other)
  Sender: FDA-Public Use
  Company Number: US-PFIZER INC-PV202300062758

PATIENT
  Age: 50 Year
  Sex: Female

DRUGS (1)
  1. NIVESTYM [Suspect]
     Active Substance: FILGRASTIM-AAFI
     Dosage: UNK

REACTIONS (5)
  - Plasma cell myeloma [Unknown]
  - Renal injury [Unknown]
  - Off label use [Unknown]
  - Fistula [Unknown]
  - Loss of personal independence in daily activities [Unknown]
